FAERS Safety Report 4592671-4 (Version None)
Quarter: 2005Q1

REPORT INFORMATION
  Report Type: 
  Country: None (occurrence: None)
  Receive Date: 20050222
  Receipt Date: 20050211
  Transmission Date: 20050727
  Serious: Yes (Other)
  Sender: FDA-Public Use
  Company Number: 2005-02-0584

PATIENT
  Age: 45 Year
  Sex: Female

DRUGS (4)
  1. BETAMETHASONE DIPROPIONATE [Suspect]
     Indication: SINUSITIS
     Dosage: 1 INJ Q3WKS
  2. VENTOLIN [Concomitant]
  3. SERETIDE             (SALMETEROL XINAFOATE/FLUTICASONE PROPIONATE) [Concomitant]
  4. HYDROCORTISON [Concomitant]

REACTIONS (5)
  - ASTHMA [None]
  - CONDITION AGGRAVATED [None]
  - LIGAMENT DISORDER [None]
  - REBOUND EFFECT [None]
  - WEIGHT INCREASED [None]
